FAERS Safety Report 6357178-2 (Version None)
Quarter: 2009Q3

REPORT INFORMATION
  Report Type: 
  Country: None (occurrence: None)
  Receive Date: 20090911
  Receipt Date: 20090901
  Transmission Date: 20100115
  Serious: Yes (Other)
  Sender: FDA-Public Use
  Company Number: 230346J09USA

PATIENT
  Age: 60 Year
  Sex: Female

DRUGS (2)
  1. REBIF [Suspect]
     Indication: MULTIPLE SCLEROSIS
  2. AVONEX [Suspect]
     Indication: MULTIPLE SCLEROSIS
     Dosage: INTRAMUSCULAR
     Route: 030

REACTIONS (4)
  - CONVULSION [None]
  - GASTROINTESTINAL DISORDER [None]
  - INFLUENZA LIKE ILLNESS [None]
  - MULTIPLE SCLEROSIS RELAPSE [None]
